FAERS Safety Report 17004341 (Version 5)
Quarter: 2020Q1

REPORT INFORMATION
  Report Type: Report from Study
  Country: CO (occurrence: CO)
  Receive Date: 20191107
  Receipt Date: 20200225
  Transmission Date: 20200409
  Serious: Yes (Hospitalization, Other)
  Sender: FDA-Public Use
  Company Number: PHHY2015CO082714

PATIENT
  Age: 62 Year
  Sex: Female
  Weight: 60 kg

DRUGS (12)
  1. EXEMESTANE. [Suspect]
     Active Substance: EXEMESTANE
     Indication: BREAST CANCER
     Dosage: UNK, QD
     Route: 048
     Dates: start: 20160504
  2. LEVOTHYROXINE. [Concomitant]
     Active Substance: LEVOTHYROXINE
     Indication: THYROID DISORDER
     Dosage: 100 MG, QD
     Route: 048
  3. IRON SULFATE [Concomitant]
     Active Substance: FERROUS SULFATE ANHYDROUS
     Indication: PRODUCT USED FOR UNKNOWN INDICATION
     Dosage: UNK OT, QD
     Route: 065
  4. VITAMIN C [Concomitant]
     Active Substance: ASCORBIC ACID
     Indication: PRODUCT USED FOR UNKNOWN INDICATION
     Dosage: UNK OT, QD
     Route: 065
  5. AFINITOR [Suspect]
     Active Substance: EVEROLIMUS
     Indication: BREAST CANCER
     Dosage: 10 MG, QD
     Route: 048
     Dates: start: 20140101
  6. AFINITOR [Suspect]
     Active Substance: EVEROLIMUS
     Indication: RENAL CANCER
     Dosage: 10 MG, QD
     Route: 048
     Dates: start: 20141209, end: 20151108
  7. AFINITOR [Suspect]
     Active Substance: EVEROLIMUS
     Dosage: 10 MG, QD
     Route: 048
     Dates: end: 20200117
  8. ACETAMINOPHEN. [Concomitant]
     Active Substance: ACETAMINOPHEN
     Indication: PRODUCT USED FOR UNKNOWN INDICATION
     Dosage: 500 MG, Q8H
     Route: 065
  9. KISQALI [Suspect]
     Active Substance: RIBOCICLIB
     Indication: BREAST CANCER METASTATIC
     Dosage: 600 MG, QD
     Route: 048
     Dates: start: 20200123
  10. AFINITOR [Suspect]
     Active Substance: EVEROLIMUS
     Dosage: 10 MG, QD
     Route: 048
     Dates: start: 20160504
  11. KISQALI [Suspect]
     Active Substance: RIBOCICLIB
     Indication: MENOPAUSAL SYMPTOMS
  12. FOLIC ACID. [Concomitant]
     Active Substance: FOLIC ACID
     Indication: PRODUCT USED FOR UNKNOWN INDICATION
     Dosage: UNK OT, QD
     Route: 065

REACTIONS (31)
  - Inflammation [Not Recovered/Not Resolved]
  - Gingival hypertrophy [Unknown]
  - Furuncle [Unknown]
  - Oral mucosal exfoliation [Recovered/Resolved]
  - Pain [Unknown]
  - Pruritus [Unknown]
  - Cellulitis [Unknown]
  - Headache [Unknown]
  - Hordeolum [Unknown]
  - Skin exfoliation [Unknown]
  - Decreased appetite [Unknown]
  - Rash [Unknown]
  - Decreased immune responsiveness [Unknown]
  - Pharyngeal disorder [Unknown]
  - Viral infection [Unknown]
  - Eye pain [Unknown]
  - Oral discomfort [Unknown]
  - Haemoglobin decreased [Unknown]
  - Diarrhoea [Unknown]
  - Flavivirus infection [Recovered/Resolved]
  - Malaise [Unknown]
  - Influenza [Recovered/Resolved]
  - Bone pain [Unknown]
  - Musculoskeletal pain [Unknown]
  - Mood altered [Unknown]
  - Hypersensitivity [Unknown]
  - Swelling [Unknown]
  - Pain in extremity [Unknown]
  - Weight decreased [Unknown]
  - Chikungunya virus infection [Unknown]
  - Dry skin [Not Recovered/Not Resolved]

NARRATIVE: CASE EVENT DATE: 20151016
